FAERS Safety Report 25979324 (Version 1)
Quarter: 2025Q4

REPORT INFORMATION
  Report Type: Spontaneous
  Country: US (occurrence: US)
  Receive Date: 20251030
  Receipt Date: 20251030
  Transmission Date: 20260118
  Serious: Yes (Other)
  Sender: RANBAXY
  Company Number: US-SUN PHARMACEUTICAL INDUSTRIES INC-2025R1-533846

PATIENT
  Age: 12 Year
  Sex: Female

DRUGS (3)
  1. CLOBETASOL [Suspect]
     Active Substance: CLOBETASOL
     Indication: Alopecia universalis
     Dosage: UNK
     Route: 061
  2. ANTHRALIN [Suspect]
     Active Substance: ANTHRALIN
     Indication: Alopecia universalis
     Dosage: UNK
     Route: 065
  3. SQUARIC ACID DIBUTYLESTER [Suspect]
     Active Substance: SQUARIC ACID DIBUTYL ESTER
     Indication: Alopecia universalis
     Dosage: UNK
     Route: 061

REACTIONS (1)
  - Treatment failure [Unknown]
